FAERS Safety Report 5087563-0 (Version None)
Quarter: 2006Q3

REPORT INFORMATION
  Report Type: 
  Country: None (occurrence: None)
  Receive Date: 20060822
  Receipt Date: 20060822
  Transmission Date: 20061208
  Serious: Yes (Hospitalization)
  Sender: FDA-Public Use
  Company Number: None

PATIENT
  Age: 62 Year
  Sex: Male
  Weight: 97.0698 kg

DRUGS (14)
  1. DILANTIN [Suspect]
     Indication: CONVULSION PROPHYLAXIS
     Dosage: 100MG TID PO
     Route: 048
     Dates: start: 20060512, end: 20060604
  2. DOCUSATE [Concomitant]
  3. VICODIN [Concomitant]
  4. HYDROXYZINE [Concomitant]
  5. LORATADINE [Concomitant]
  6. METOPROLOL TARTRATE [Concomitant]
  7. PERCOCET [Concomitant]
  8. DIPHENHYDRAMINE [Concomitant]
  9. DEXAMETHASONE [Concomitant]
  10. HYDROCHLOROTHIAZIDE [Concomitant]
  11. LISINOPRIL [Concomitant]
  12. DECADRON [Concomitant]
  13. VANICREAM [Concomitant]
  14. VARDENAFIL [Concomitant]

REACTIONS (10)
  - BLOOD ALBUMIN DECREASED [None]
  - BLOOD CREATININE INCREASED [None]
  - CHILLS [None]
  - CONFUSIONAL STATE [None]
  - DRUG RASH WITH EOSINOPHILIA AND SYSTEMIC SYMPTOMS [None]
  - MALAISE [None]
  - PRURITUS [None]
  - PYREXIA [None]
  - RASH [None]
  - RASH MACULAR [None]
